FAERS Safety Report 24242342 (Version 9)
Quarter: 2025Q1

REPORT INFORMATION
  Report Type: Report from Study
  Country: CA (occurrence: CA)
  Receive Date: 20240823
  Receipt Date: 20250117
  Transmission Date: 20250408
  Serious: Yes (Hospitalization)
  Sender: BIOCON
  Company Number: CA-MYLANLABS-2023M1083232

PATIENT

DRUGS (5)
  1. HULIO [Suspect]
     Active Substance: ADALIMUMAB-FKJP
     Indication: Crohn^s disease
     Route: 058
     Dates: start: 20230807
  2. HULIO [Suspect]
     Active Substance: ADALIMUMAB-FKJP
     Route: 058
     Dates: start: 20220305
  3. HULIO [Suspect]
     Active Substance: ADALIMUMAB-FKJP
     Route: 058
     Dates: start: 202308, end: 202402
  4. HULIO [Suspect]
     Active Substance: ADALIMUMAB-FKJP
     Route: 065
  5. HULIO [Suspect]
     Active Substance: ADALIMUMAB-FKJP
     Dosage: 40 MILLIGRAM, QWEEK
     Route: 058

REACTIONS (10)
  - Surgery [Unknown]
  - Diarrhoea [Not Recovered/Not Resolved]
  - Pyrexia [Unknown]
  - Haemoglobin abnormal [Unknown]
  - Haematocrit abnormal [Unknown]
  - Pain [Recovered/Resolved]
  - Abdominal pain [Unknown]
  - Inappropriate schedule of product administration [Unknown]
  - Lack of injection site rotation [Unknown]
  - Off label use [Unknown]

NARRATIVE: CASE EVENT DATE: 20240205
